FAERS Safety Report 14297674 (Version 5)
Quarter: 2018Q2

REPORT INFORMATION
  Report Type: Spontaneous
  Country: JP (occurrence: JP)
  Receive Date: 20171218
  Receipt Date: 20180430
  Transmission Date: 20180711
  Serious: Yes (Death, Other)
  Sender: FDA-Public Use
  Company Number: JP-SEATTLE GENETICS-2017SGN02368

PATIENT
  Age: 70 Year
  Sex: Female
  Weight: 39.2 kg

DRUGS (72)
  1. FAMOTIDINE. [Concomitant]
     Active Substance: FAMOTIDINE
     Dosage: 20 MG, QD
     Route: 048
     Dates: start: 20170816, end: 20170816
  2. BETAMETHASONE, CHLORPHENAMINE MALEATE [Concomitant]
     Dosage: 1 DF, QD
     Route: 048
     Dates: start: 20171109, end: 20171129
  3. ACHYRANTHES BIDENTATA ROOT, ACONITUM SPP. PROCESSED ROOT, ALISMA PLANT [Concomitant]
     Dosage: UNK
     Route: 048
  4. SULFAMETHOXAZOLE, TRIMETHOPRIM [Concomitant]
     Active Substance: SULFAMETHOXAZOLE\TRIMETHOPRIM
     Dosage: 1 DF, QD
     Route: 048
     Dates: start: 20171109, end: 20171120
  5. MAGNESIUM OXIDE. [Concomitant]
     Active Substance: MAGNESIUM OXIDE
     Dosage: 660 MG, TID
     Route: 048
     Dates: start: 20170802, end: 20170813
  6. GRANISETRON HYDROCHLORIDE. [Concomitant]
     Active Substance: GRANISETRON HYDROCHLORIDE
     Dosage: 3 MG, UNK
     Route: 041
     Dates: start: 20171003, end: 20171003
  7. DEXAMETHASONE SODIUM PHOSPHATE. [Concomitant]
     Active Substance: DEXAMETHASONE SODIUM PHOSPHATE
     Dosage: 6.6 MG, UNK
     Route: 041
     Dates: start: 20171003, end: 20171003
  8. WATER FOR INJECTION [Concomitant]
     Active Substance: WATER
     Dosage: 40 ML, UNK
     Route: 041
     Dates: start: 20170823, end: 20170823
  9. WATER FOR INJECTION [Concomitant]
     Active Substance: WATER
     Dosage: 40 ML, UNK
     Route: 041
     Dates: start: 20170912, end: 20170912
  10. SODIUM CHLORIDE. [Concomitant]
     Active Substance: SODIUM CHLORIDE
     Dosage: 100 ML, UNK
     Route: 041
     Dates: start: 20170823, end: 20170823
  11. ACONITUM SPP. PROCESSED ROOT, ASARUM SPP. ROOT, EPHEDRA SPP. HERB [Concomitant]
     Dosage: 1 DF, TID
     Route: 048
     Dates: start: 20170919, end: 20170925
  12. FAMOTIDINE. [Concomitant]
     Active Substance: FAMOTIDINE
     Dosage: 20 MG, QD
     Route: 048
     Dates: start: 20170802, end: 20170811
  13. BEPOTASTINE BESILATE [Concomitant]
     Active Substance: BEPOTASTINE BESILATE
     Dosage: 10 MG, BID
     Route: 048
     Dates: start: 20171109, end: 20171129
  14. ACHYRANTHES BIDENTATA ROOT, ACONITUM SPP. PROCESSED ROOT, ALISMA PLANT [Concomitant]
     Dosage: 1 DF, BID
     Route: 048
     Dates: start: 20170829, end: 20171023
  15. ALFACALCIDOL [Concomitant]
     Active Substance: ALFACALCIDOL
     Dosage: 0.5 UG, QD
     Route: 048
     Dates: start: 20171130, end: 20171206
  16. URSODEOXYCHOLIC ACID [Concomitant]
     Active Substance: URSODIOL
     Dosage: 100 MG, TID
     Route: 048
     Dates: start: 20171109, end: 20171206
  17. MAGNESIUM OXIDE. [Concomitant]
     Active Substance: MAGNESIUM OXIDE
     Dosage: 660 MG, TID
     Route: 048
     Dates: start: 20170822, end: 20170905
  18. MAGNESIUM OXIDE. [Concomitant]
     Active Substance: MAGNESIUM OXIDE
     Dosage: 660 MG, TID
     Route: 048
     Dates: start: 20171117, end: 20171130
  19. WATER FOR INJECTION [Concomitant]
     Active Substance: WATER
     Dosage: 40 ML, UNK
     Route: 041
     Dates: start: 20171003, end: 20171003
  20. BEPOTASTINE BESILATE [Concomitant]
     Active Substance: BEPOTASTINE BESILATE
     Dosage: 10 MG, BID
     Route: 048
     Dates: start: 20170829, end: 20171023
  21. BETAMETHASONE, CHLORPHENAMINE MALEATE [Concomitant]
     Dosage: 1 DF, TID
     Route: 048
     Dates: start: 20170818, end: 20170822
  22. BETAMETHASONE, CHLORPHENAMINE MALEATE [Concomitant]
     Dosage: 1 DF, TID
     Route: 048
     Dates: start: 20170824, end: 20170828
  23. BETAMETHASONE, CHLORPHENAMINE MALEATE [Concomitant]
     Dosage: 5 DF, UNK
     Route: 048
     Dates: start: 20170829, end: 20170829
  24. ACHYRANTHES BIDENTATA ROOT, ACONITUM SPP. PROCESSED ROOT, ALISMA PLANT [Concomitant]
     Dosage: UNK
     Route: 048
     Dates: start: 20171106
  25. ALFACALCIDOL [Concomitant]
     Active Substance: ALFACALCIDOL
     Dosage: 0.5 UG, QD
     Route: 048
     Dates: start: 20171109, end: 20171129
  26. MAGNESIUM OXIDE. [Concomitant]
     Active Substance: MAGNESIUM OXIDE
     Dosage: 1320 MG, TID
     Route: 048
     Dates: start: 20170816, end: 20170821
  27. GRANISETRON HYDROCHLORIDE. [Concomitant]
     Active Substance: GRANISETRON HYDROCHLORIDE
     Dosage: 3 MG, UNK
     Route: 041
     Dates: start: 20170912, end: 20170912
  28. BEPOTASTINE BESILATE [Concomitant]
     Active Substance: BEPOTASTINE BESILATE
     Dosage: UNK
     Route: 048
  29. BETAMETHASONE, CHLORPHENAMINE MALEATE [Concomitant]
     Dosage: 1 DF, QD
     Route: 048
     Dates: start: 20170912, end: 20171023
  30. ALFACALCIDOL [Concomitant]
     Active Substance: ALFACALCIDOL
     Dosage: 0.5 UG, QD
     Route: 048
     Dates: end: 20171210
  31. URSODEOXYCHOLIC ACID [Concomitant]
     Active Substance: URSODIOL
     Dosage: 100 MG, TID
     Route: 048
     Dates: end: 20171210
  32. URSODEOXYCHOLIC ACID [Concomitant]
     Active Substance: URSODIOL
     Dosage: UNK UNK, TID
     Route: 048
     Dates: start: 20171106
  33. AMPHOTERICIN B. [Concomitant]
     Active Substance: AMPHOTERICIN B
     Dosage: UNK
     Route: 048
     Dates: start: 20171207, end: 20171210
  34. DEXAMETHASONE SODIUM PHOSPHATE. [Concomitant]
     Active Substance: DEXAMETHASONE SODIUM PHOSPHATE
     Dosage: 6.6 MG, UNK
     Route: 041
     Dates: start: 20170912, end: 20170912
  35. CLOSTRIDIUM BUTYRICUM [Concomitant]
     Active Substance: CLOSTRIDIUM BUTYRICUM SPORES STRAIN M-55
     Dosage: 1 DF, TID
     Route: 048
     Dates: start: 20170919, end: 20170925
  36. FAMOTIDINE. [Concomitant]
     Active Substance: FAMOTIDINE
     Dosage: 40 MG, QD
     Route: 048
     Dates: start: 20170812, end: 20170813
  37. FAMOTIDINE. [Concomitant]
     Active Substance: FAMOTIDINE
     Dosage: 20 MG, QD
     Route: 048
     Dates: start: 20170830, end: 20171023
  38. BETAMETHASONE, CHLORPHENAMINE MALEATE [Concomitant]
     Dosage: UNK
     Route: 048
  39. ESOMEPRAZOLE MAGNESIUM. [Concomitant]
     Active Substance: ESOMEPRAZOLE MAGNESIUM
     Dosage: 20 MG, QD
     Route: 048
     Dates: end: 20171210
  40. FEXOFENADINE HYDROCHLORIDE. [Concomitant]
     Active Substance: FEXOFENADINE HYDROCHLORIDE
     Dosage: 60 MG, BID
     Route: 048
     Dates: end: 20171210
  41. MAGNESIUM OXIDE. [Concomitant]
     Active Substance: MAGNESIUM OXIDE
     Dosage: UNK
     Route: 048
     Dates: start: 20170801, end: 20170801
  42. DEXAMETHASONE SODIUM PHOSPHATE. [Concomitant]
     Active Substance: DEXAMETHASONE SODIUM PHOSPHATE
     Dosage: 6.6 MG, UNK
     Route: 041
     Dates: start: 20170823, end: 20170823
  43. SODIUM CHLORIDE. [Concomitant]
     Active Substance: SODIUM CHLORIDE
     Dosage: 100 ML, UNK
     Route: 041
     Dates: start: 20170817, end: 20170823
  44. SODIUM CHLORIDE. [Concomitant]
     Active Substance: SODIUM CHLORIDE
     Dosage: 200 ML, UNK
     Route: 041
     Dates: start: 20170912, end: 20170912
  45. SODIUM CHLORIDE. [Concomitant]
     Active Substance: SODIUM CHLORIDE
     Dosage: 10 ML, UNK
     Route: 042
     Dates: start: 20170829, end: 20170829
  46. FAMOTIDINE. [Concomitant]
     Active Substance: FAMOTIDINE
     Dosage: 60 MG, QD
     Route: 048
     Dates: start: 20170814, end: 20170814
  47. FAMOTIDINE. [Concomitant]
     Active Substance: FAMOTIDINE
     Dosage: 40 MG, QD
     Route: 048
     Dates: start: 20170829, end: 20170829
  48. BETAMETHASONE, CHLORPHENAMINE MALEATE [Concomitant]
     Dosage: 7 DF, UNK
     Route: 048
     Dates: start: 20170823, end: 20170823
  49. BETAMETHASONE, CHLORPHENAMINE MALEATE [Concomitant]
     Dosage: UNK
     Route: 048
     Dates: start: 20171106
  50. ADCETRIS [Suspect]
     Active Substance: BRENTUXIMAB VEDOTIN
     Indication: HODGKIN^S DISEASE RECURRENT
     Dosage: 80 MG, Q21D
     Route: 041
     Dates: start: 20170711, end: 20170912
  51. FAMOTIDINE. [Concomitant]
     Active Substance: FAMOTIDINE
     Dosage: 20 MG, QD
     Route: 048
     Dates: start: 20170824, end: 20170828
  52. BEPOTASTINE BESILATE [Concomitant]
     Active Substance: BEPOTASTINE BESILATE
     Dosage: UNK
     Route: 048
     Dates: start: 20171106
  53. ESOMEPRAZOLE MAGNESIUM. [Concomitant]
     Active Substance: ESOMEPRAZOLE MAGNESIUM
     Dosage: UNK UNK, QD
     Route: 048
     Dates: start: 20171106
  54. ALFACALCIDOL [Concomitant]
     Active Substance: ALFACALCIDOL
     Dosage: UNK
     Route: 048
     Dates: start: 20171106
  55. SULFAMETHOXAZOLE, TRIMETHOPRIM [Concomitant]
     Active Substance: SULFAMETHOXAZOLE\TRIMETHOPRIM
     Dosage: UNK UNK, QD
     Route: 048
     Dates: end: 20171208
  56. SULFAMETHOXAZOLE, TRIMETHOPRIM [Concomitant]
     Active Substance: SULFAMETHOXAZOLE\TRIMETHOPRIM
     Dosage: UNK UNK, QD
     Route: 048
     Dates: start: 20171106
  57. MAGNESIUM OXIDE. [Concomitant]
     Active Substance: MAGNESIUM OXIDE
     Dosage: 1320 MG, TID
     Route: 048
     Dates: start: 20170814, end: 20170814
  58. MAGNESIUM OXIDE. [Concomitant]
     Active Substance: MAGNESIUM OXIDE
     Dosage: 660 MG, TID
     Route: 048
     Dates: start: 20171109, end: 20171114
  59. MAGNESIUM OXIDE. [Concomitant]
     Active Substance: MAGNESIUM OXIDE
     Dosage: 660 MG, TID
     Route: 048
     Dates: start: 20171205, end: 20171206
  60. MAGNESIUM OXIDE. [Concomitant]
     Active Substance: MAGNESIUM OXIDE
     Dosage: UNK
  61. FAMOTIDINE. [Concomitant]
     Active Substance: FAMOTIDINE
     Dosage: UNK
     Route: 065
  62. FAMOTIDINE. [Concomitant]
     Active Substance: FAMOTIDINE
     Dosage: UNK
     Route: 065
  63. FAMOTIDINE. [Concomitant]
     Active Substance: FAMOTIDINE
     Dosage: UNK
     Route: 048
     Dates: start: 20170801, end: 20170801
  64. FAMOTIDINE. [Concomitant]
     Active Substance: FAMOTIDINE
     Dosage: 40 MG, QD
     Route: 048
     Dates: start: 20170817, end: 20170821
  65. FAMOTIDINE. [Concomitant]
     Active Substance: FAMOTIDINE
     Dosage: 20 MG, QD
     Route: 048
     Dates: start: 20170822, end: 20170822
  66. BEPOTASTINE BESILATE [Concomitant]
     Active Substance: BEPOTASTINE BESILATE
     Dosage: 10 MG, BID
     Route: 048
     Dates: start: 20171130, end: 20171206
  67. BETAMETHASONE, CHLORPHENAMINE MALEATE [Concomitant]
     Dosage: 1 DF, BID
     Route: 048
     Dates: start: 20170830, end: 20170911
  68. ESOMEPRAZOLE MAGNESIUM. [Concomitant]
     Active Substance: ESOMEPRAZOLE MAGNESIUM
     Dosage: 10 MG, QD
     Route: 048
     Dates: start: 20171109, end: 20171206
  69. MAGNESIUM OXIDE. [Concomitant]
     Active Substance: MAGNESIUM OXIDE
     Dosage: UNK
     Route: 048
     Dates: start: 20171108, end: 20171108
  70. GRANISETRON HYDROCHLORIDE. [Concomitant]
     Active Substance: GRANISETRON HYDROCHLORIDE
     Dosage: 3 MG, UNK
     Route: 041
     Dates: start: 20170823, end: 20170823
  71. SODIUM CHLORIDE. [Concomitant]
     Active Substance: SODIUM CHLORIDE
     Dosage: UNK
     Route: 041
     Dates: start: 20170812
  72. SODIUM CHLORIDE. [Concomitant]
     Active Substance: SODIUM CHLORIDE
     Dosage: 200 ML, UNK
     Route: 041
     Dates: start: 20171003, end: 20171003

REACTIONS (2)
  - Interstitial lung disease [Fatal]
  - Dysuria [Unknown]

NARRATIVE: CASE EVENT DATE: 20170811
